FAERS Safety Report 7592692-3 (Version None)
Quarter: 2011Q3

REPORT INFORMATION
  Report Type: 
  Country: None (occurrence: None)
  Receive Date: 20110706
  Receipt Date: 20110630
  Transmission Date: 20111222
  Serious: Yes (Other)
  Sender: FDA-Public Use
  Company Number: US-PFIZER INC-2011147545

PATIENT
  Sex: Male
  Weight: 102.95 kg

DRUGS (6)
  1. FLUTICASONE [Concomitant]
     Indication: RHINORRHOEA
     Dosage: UNK
     Route: 045
  2. SYMBICORT [Concomitant]
     Indication: SINUS DISORDER
     Dosage: UNK, 2X/DAY
     Route: 055
  3. VENTOLIN HFA [Concomitant]
     Indication: DYSPNOEA
     Dosage: UNK, AS NEEDED
  4. LORATADINE [Concomitant]
     Indication: HYPERSENSITIVITY
     Dosage: 10 MG, UNK
     Route: 048
  5. CHANTIX [Suspect]
     Indication: SMOKING CESSATION THERAPY
     Dosage: 0.5 MG, 1X/DAY
     Route: 048
     Dates: start: 20110101, end: 20110101
  6. CHANTIX [Suspect]
     Dosage: UNK
     Route: 048
     Dates: start: 20110101, end: 20110625

REACTIONS (6)
  - FATIGUE [None]
  - DIZZINESS [None]
  - VOMITING [None]
  - NAUSEA [None]
  - WEIGHT INCREASED [None]
  - ASTHENIA [None]
